FAERS Safety Report 4487035-8 (Version None)
Quarter: 2004Q3

REPORT INFORMATION
  Report Type: 
  Country: None (occurrence: None)
  Receive Date: 20040921
  Receipt Date: 20040407
  Transmission Date: 20050211
  Serious: Yes (Hospitalization)
  Sender: FDA-Public Use
  Company Number: 163-20785-04040170

PATIENT
  Age: 75 Year
  Sex: Male

DRUGS (12)
  1. THALOMID [Suspect]
     Indication: PROSTATE CANCER
     Dosage: 50 MG. QHS, ORAL
     Route: 048
     Dates: start: 20031029, end: 20040420
  2. TAXOTERE [Suspect]
     Indication: PROSTATE CANCER
     Dates: start: 20040323, end: 20040404
  3. EMCYT [Suspect]
     Indication: PROSTATE CANCER
     Dates: start: 20040323, end: 20040404
  4. XELODA [Suspect]
     Indication: PROSTATE CANCER
     Dates: start: 20040323, end: 20040404
  5. CYTADREN (AMINOGLUTETHIMIDE) [Concomitant]
  6. HYDROCORTISONE [Concomitant]
  7. PROSCAR [Concomitant]
  8. CALCITRIOL [Concomitant]
  9. LYCOMATO [Concomitant]
  10. LUPRON [Concomitant]
  11. EPOGEN [Concomitant]
  12. ZOMETA [Concomitant]

REACTIONS (2)
  - DIARRHOEA [None]
  - NAUSEA [None]
